FAERS Safety Report 9448971 (Version 1)
Quarter: 2013Q3

REPORT INFORMATION
  Report Type: Spontaneous
  Country: BR (occurrence: BR)
  Receive Date: 20130808
  Receipt Date: 20130808
  Transmission Date: 20140515
  Serious: Yes (Other)
  Sender: FDA-Public Use
  Company Number: PHHY2013BR085428

PATIENT
  Age: 81 Year
  Sex: Female
  Weight: 72 kg

DRUGS (6)
  1. DIOVAN [Suspect]
     Indication: BLOOD PRESSURE ABNORMAL
     Dosage: 160 MG, UNK
     Route: 048
  2. NOVOLIN 30R//INSULIN [Concomitant]
     Dosage: 56 UL, (42 UL IN MORNING AND 14 UL AT NIGHT)
  3. LYRICA [Concomitant]
     Indication: PARKINSON^S DISEASE
     Dosage: UNK UKN, UNK
     Dates: start: 2012
  4. PROLOPA [Concomitant]
     Indication: PARKINSON^S DISEASE
     Dosage: 3 DF, A DAY
  5. TEGRETOL [Concomitant]
     Indication: PARKINSON^S DISEASE
     Dosage: 200 MG, A DAY
     Route: 048
  6. CITONEURIN                         /00176001/ [Concomitant]
     Indication: PARKINSON^S DISEASE
     Dosage: 5000 MG, A DAY

REACTIONS (5)
  - Diabetes mellitus [Unknown]
  - Blood pressure increased [Unknown]
  - Spinal column injury [Unknown]
  - Exostosis [Unknown]
  - General physical condition abnormal [Unknown]
